FAERS Safety Report 24864258 (Version 2)
Quarter: 2025Q1

REPORT INFORMATION
  Report Type: Report from Study
  Country: US (occurrence: US)
  Receive Date: 20250120
  Receipt Date: 20250310
  Transmission Date: 20250409
  Serious: Yes (Other)
  Sender: ALEXION PHARMACEUTICALS
  Company Number: US-AstraZeneca-CH-00788335A

PATIENT

DRUGS (3)
  1. ACALABRUTINIB [Suspect]
     Active Substance: ACALABRUTINIB
     Indication: Chronic lymphocytic leukaemia
     Dosage: 100 MILLIGRAM, BID
  2. OZEMPIC [Concomitant]
     Active Substance: SEMAGLUTIDE
     Indication: Blood glucose abnormal
  3. Coricidin [Concomitant]
     Indication: Nasopharyngitis

REACTIONS (12)
  - Visual impairment [Unknown]
  - Platelet count decreased [Unknown]
  - Glaucoma [Unknown]
  - Cataract [Unknown]
  - Neuropathy peripheral [Unknown]
  - Poor peripheral circulation [Unknown]
  - Hypertension [Unknown]
  - Upper-airway cough syndrome [Unknown]
  - Nasopharyngitis [Unknown]
  - Rhinorrhoea [Unknown]
  - Weight decreased [Unknown]
  - Product dose omission issue [Unknown]
